FAERS Safety Report 6358189-3 (Version None)
Quarter: 2009Q3

REPORT INFORMATION
  Report Type: 
  Country: None (occurrence: None)
  Receive Date: 20090916
  Receipt Date: 20090909
  Transmission Date: 20100115
  Serious: Yes (Hospitalization, Other)
  Sender: FDA-Public Use
  Company Number: US-ELI_LILLY_AND_COMPANY-US200909002195

PATIENT
  Sex: Female

DRUGS (13)
  1. HUMULIN N [Suspect]
  2. HUMALOG [Suspect]
  3. HUMULIN L [Suspect]
  4. ZOCOR [Concomitant]
     Indication: BLOOD CHOLESTEROL
  5. ENTERIC ASPIRIN [Concomitant]
     Dosage: 81 MG, UNKNOWN
  6. DYAZIDE [Concomitant]
     Dosage: 1 D/F, EACH MORNING
  7. CENTRUM SILVER [Concomitant]
  8. LIBRIUM [Concomitant]
     Dosage: 1 D/F, EACH EVENING
  9. ENALAPRIL MALEATE [Concomitant]
  10. DIOVAN [Concomitant]
     Dosage: 10 MG, UNKNOWN
     Dates: start: 20070101
  11. DIOVAN [Concomitant]
     Dosage: 320 MG, UNKNOWN
     Dates: start: 20090101
  12. LOPRESSOR [Concomitant]
  13. AMLODIPINE [Concomitant]

REACTIONS (20)
  - ABASIA [None]
  - ADRENAL MASS [None]
  - ASTHENIA [None]
  - BLOOD CHOLESTEROL INCREASED [None]
  - BLOOD POTASSIUM INCREASED [None]
  - CATARACT [None]
  - EATING DISORDER [None]
  - EYE SWELLING [None]
  - FATIGUE [None]
  - HEART RATE DECREASED [None]
  - HEART RATE INCREASED [None]
  - INSOMNIA [None]
  - INTERVERTEBRAL DISC DEGENERATION [None]
  - LABORATORY TEST ABNORMAL [None]
  - OEDEMA PERIPHERAL [None]
  - PAIN [None]
  - PALPITATIONS [None]
  - RENAL DISORDER [None]
  - SPINAL COLUMN STENOSIS [None]
  - SPINAL FUSION SURGERY [None]
